FAERS Safety Report 4897537-8 (Version None)
Quarter: 2006Q1

REPORT INFORMATION
  Report Type: 
  Country: None (occurrence: None)
  Receive Date: 20060130
  Receipt Date: 20060130
  Transmission Date: 20060701
  Serious: No
  Sender: FDA-Public Use
  Company Number: None

PATIENT
  Age: 69 Year
  Sex: Female
  Weight: 114.3065 kg

DRUGS (13)
  1. AVANDIA [Suspect]
     Indication: DIABETES MELLITUS
     Dosage: 8 MG 1 PER DAY
     Dates: start: 20010101
  2. ZOCOR [Concomitant]
  3. IBUPROFEN [Concomitant]
  4. LEVOXYL [Concomitant]
  5. POTASSIUM CL [Concomitant]
  6. ATENOLOL [Concomitant]
  7. LASIX [Concomitant]
  8. NEURONTIN [Concomitant]
  9. IRON [Concomitant]
  10. CALCIUM GLUCONATE [Concomitant]
  11. MULTI VT [Concomitant]
  12. ASPIRIN [Concomitant]
  13. PEPCID [Concomitant]

REACTIONS (4)
  - MACULAR OEDEMA [None]
  - PHOTOPHOBIA [None]
  - VISION BLURRED [None]
  - VISUAL DISTURBANCE [None]
